FAERS Safety Report 21886807 (Version 1)
Quarter: 2023Q1

REPORT INFORMATION
  Report Type: Spontaneous
  Country: FR (occurrence: FR)
  Receive Date: 20230119
  Receipt Date: 20230119
  Transmission Date: 20230417
  Serious: Yes (Death, Other)
  Sender: FDA-Public Use
  Company Number: FR-BAXTER-2022BAX026206

PATIENT
  Age: 54 Year
  Sex: Female

DRUGS (4)
  1. BORTEZOMIB [Suspect]
     Active Substance: BORTEZOMIB
     Indication: Product used for unknown indication
     Dosage: 1.9 MG/DOSE 2 DOSE(S)/WEEK 2 WEEK(S)/CYCLE
     Route: 065
     Dates: end: 20200305
  2. MELPHALAN [Suspect]
     Active Substance: MELPHALAN
     Indication: Product used for unknown indication
     Dosage: 200 MG/M2/DOSE D-2 BEFORE AUTOGRAFT
     Route: 065
     Dates: end: 20200305
  3. DEXAMETHASONE [Suspect]
     Active Substance: DEXAMETHASONE
     Indication: Product used for unknown indication
     Dosage: 404 DOSE(S)/WEEK 2 WEEK(S)/CYCLE
     Route: 065
     Dates: end: 20200305
  4. CYCLOPHOSPHAMIDE [Suspect]
     Active Substance: CYCLOPHOSPHAMIDE
     Indication: Product used for unknown indication
     Dosage: 440 MG/DOSE 1 DOSE(S)/WEEK 2 WEEK(S)/CYCLE
     Route: 065
     Dates: end: 20200305

REACTIONS (1)
  - Cardiogenic shock [Fatal]
